FAERS Safety Report 14555279 (Version 1)
Quarter: 2018Q1

REPORT INFORMATION
  Report Type: Spontaneous
  Country: US (occurrence: US)
  Receive Date: 20180219
  Receipt Date: 20180219
  Transmission Date: 20180509
  Serious: Yes (Life-Threatening, Hospitalization)
  Sender: FDA-Public Use
  Company Number: None

PATIENT
  Sex: Female
  Weight: 63.9 kg

DRUGS (1)
  1. HUMIRA [Suspect]
     Active Substance: ADALIMUMAB
     Indication: RHEUMATOID ARTHRITIS
     Dosage: ?          QUANTITY:1 INJECTION(S);OTHER FREQUENCY:EVERY 2 WEEKS;?
     Route: 058
     Dates: start: 20030720, end: 20171020

REACTIONS (7)
  - Confusional state [None]
  - Gait inability [None]
  - Acne [None]
  - Extradural abscess [None]
  - Staphylococcal infection [None]
  - Blood culture positive [None]
  - Back pain [None]

NARRATIVE: CASE EVENT DATE: 20171030
